FAERS Safety Report 5088141-X (Version None)
Quarter: 2006Q3

REPORT INFORMATION
  Report Type: 
  Country: None (occurrence: None)
  Receive Date: 20060727
  Receipt Date: 20060412
  Transmission Date: 20061208
  Serious: Yes (Other)
  Sender: FDA-Public Use
  Company Number: 2006006339

PATIENT
  Age: 65 Year
  Sex: Male
  Weight: 136.0791 kg

DRUGS (12)
  1. LYRICA [Suspect]
     Indication: NEURALGIA
     Dosage: ORAL
     Dates: start: 20051201
  2. ALL OTHER NON-THERAPEUTIC PRODUCTS (ALL OTHER NON-THERAPEUTIC PRODUCTS [Suspect]
     Indication: ILL-DEFINED DISORDER
     Dates: end: 20060109
  3. ACTOS [Concomitant]
  4. DEMADEX [Concomitant]
  5. ATACAND [Concomitant]
  6. ALLOPURINOL [Concomitant]
  7. COLCHICUM JTL LIQ [Concomitant]
  8. ZETIA [Concomitant]
  9. FOLIC ACID [Concomitant]
  10. PREVACID [Concomitant]
  11. CATAPRES-TTS-1 [Concomitant]
  12. VITAMIN B12 [Concomitant]

REACTIONS (2)
  - DRUG INTERACTION [None]
  - PAIN [None]
